FAERS Safety Report 14822728 (Version 1)
Quarter: 2018Q2

REPORT INFORMATION
  Report Type: Spontaneous
  Country: US (occurrence: US)
  Receive Date: 20180427
  Receipt Date: 20180427
  Transmission Date: 20180711
  Serious: No
  Sender: FDA-Public Use
  Company Number: US-009507513-1804USA008374

PATIENT
  Sex: Female

DRUGS (7)
  1. ATENOLOL. [Suspect]
     Active Substance: ATENOLOL
     Indication: HYPERTENSION
  2. TOLVAPTAN [Concomitant]
     Active Substance: TOLVAPTAN
     Indication: RENAL IMPAIRMENT
     Dosage: 0.05 MG/KG/DAY (CONCENTRATION: 0.15 MG/ML)
     Route: 048
  3. MINOXIDIL. [Suspect]
     Active Substance: MINOXIDIL
     Indication: HYPERTENSION
  4. NIFEDIPINE. [Suspect]
     Active Substance: NIFEDIPINE
     Indication: HYPERTENSION
  5. TOLVAPTAN [Concomitant]
     Active Substance: TOLVAPTAN
     Dosage: DOSE ESCALATION WITH A GOAL OF 1 MG/KG/DAY DIVIDED INTO TWO DOSES (CONCENTRATION: 0.15 MG/ML)
     Route: 048
  6. AMLODIPINE [Suspect]
     Active Substance: AMLODIPINE BESYLATE
     Indication: HYPERTENSION
  7. PRINIVIL [Suspect]
     Active Substance: LISINOPRIL
     Indication: HYPERTENSION
     Route: 048

REACTIONS (1)
  - Treatment failure [Unknown]
